FAERS Safety Report 6337003-6 (Version None)
Quarter: 2009Q3

REPORT INFORMATION
  Report Type: 
  Country: None (occurrence: None)
  Receive Date: 20090901
  Receipt Date: 20090820
  Transmission Date: 20100115
  Serious: Yes (Other)
  Sender: FDA-Public Use
  Company Number: US-WYE-H10665809

PATIENT
  Sex: Male
  Weight: 59.93 kg

DRUGS (2)
  1. EFFEXOR XR [Suspect]
     Indication: ANXIETY
     Route: 048
     Dates: start: 20040101, end: 20090804
  2. ZYRTEC [Concomitant]
     Indication: SEASONAL ALLERGY
     Dosage: UNKNOWN DOSE, TAKES FEB-OCT ONLY

REACTIONS (7)
  - DECREASED APPETITE [None]
  - DIARRHOEA [None]
  - DRUG WITHDRAWAL SYNDROME [None]
  - FEELING OF BODY TEMPERATURE CHANGE [None]
  - INSOMNIA [None]
  - SUICIDAL IDEATION [None]
  - WEIGHT DECREASED [None]
